FAERS Safety Report 20320923 (Version 9)
Quarter: 2022Q1

REPORT INFORMATION
  Report Type: Spontaneous
  Country: US (occurrence: US)
  Receive Date: 20220111
  Receipt Date: 20220225
  Transmission Date: 20220424
  Serious: Yes (Hospitalization, Other)
  Sender: FDA-Public Use
  Company Number: US-UNITED THERAPEUTICS-UNT-2021-027106

PATIENT
  Age: 74 Year
  Sex: Female
  Weight: 47.619 kg

DRUGS (4)
  1. REMODULIN [Suspect]
     Active Substance: TREPROSTINIL
     Indication: Pulmonary arterial hypertension
     Dosage: UNK, CONTINUING
     Route: 041
     Dates: start: 20210521
  2. REMODULIN [Suspect]
     Active Substance: TREPROSTINIL
     Dosage: 0.032 ?G/KG, CONTINUING
     Route: 041
  3. REMODULIN [Suspect]
     Active Substance: TREPROSTINIL
     Dosage: 0.042 ?G/KG, CONTINUING
     Route: 041
     Dates: start: 202201
  4. REMODULIN [Suspect]
     Active Substance: TREPROSTINIL
     Dosage: UNK, CONTINUING
     Route: 041

REACTIONS (15)
  - Fluid retention [Unknown]
  - Blood sodium decreased [Unknown]
  - Arthralgia [Unknown]
  - Back pain [Unknown]
  - Hypervolaemia [Unknown]
  - Abdominal pain upper [Unknown]
  - Pain [Unknown]
  - Asthenia [Recovering/Resolving]
  - Urinary retention [Recovering/Resolving]
  - Peripheral swelling [Not Recovered/Not Resolved]
  - Joint swelling [Recovering/Resolving]
  - Gastrointestinal disorder [Unknown]
  - Atrial fibrillation [Unknown]
  - Blood sodium increased [Unknown]
  - Decubitus ulcer [Recovering/Resolving]

NARRATIVE: CASE EVENT DATE: 20211231
